FAERS Safety Report 18494625 (Version 1)
Quarter: 2020Q4

REPORT INFORMATION
  Report Type: Spontaneous
  Country: US (occurrence: US)
  Receive Date: 20201111
  Receipt Date: 20201111
  Transmission Date: 20210114
  Serious: Yes (Death, Hospitalization)
  Sender: FDA-Public Use
  Company Number: None

PATIENT
  Age: 82 Year
  Sex: Male

DRUGS (13)
  1. FLUTICASONE. [Concomitant]
     Active Substance: FLUTICASONE
  2. LISINOPRIL. [Concomitant]
     Active Substance: LISINOPRIL
  3. OXYBUTYNIN. [Concomitant]
     Active Substance: OXYBUTYNIN CHLORIDE
  4. ESBRIET [Suspect]
     Active Substance: PIRFENIDONE
     Indication: IDIOPATHIC PULMONARY FIBROSIS
     Route: 048
     Dates: start: 20150425
  5. DOXYCYCL HYC [Concomitant]
  6. METOPROL SUC ER [Concomitant]
  7. NITROGLYCERN SUB [Concomitant]
  8. POT CITRATE [Concomitant]
     Active Substance: POTASSIUM CITRATE
  9. AMLODIPINE [Concomitant]
     Active Substance: AMLODIPINE BESYLATE
  10. MUPIROCIN. [Concomitant]
     Active Substance: MUPIROCIN
  11. OMEPRAZOLE. [Concomitant]
     Active Substance: OMEPRAZOLE
  12. ATORVASTATIN [Concomitant]
     Active Substance: ATORVASTATIN
  13. TRIAMCINOLON OIN [Concomitant]

REACTIONS (2)
  - Idiopathic pulmonary fibrosis [None]
  - Death [None]

NARRATIVE: CASE EVENT DATE: 20201105
